FAERS Safety Report 9199362 (Version 1)
Quarter: 2013Q1

REPORT INFORMATION
  Report Type: Spontaneous
  Country: US (occurrence: US)
  Receive Date: 20130329
  Receipt Date: 20130329
  Transmission Date: 20140127
  Serious: No
  Sender: FDA-Public Use
  Company Number: US-009507513-1303USA010677

PATIENT
  Sex: 0

DRUGS (3)
  1. CORICIDIN HBP COUGH AND COLD [Suspect]
     Indication: COUGH
     Dosage: UNK, Q6H
     Route: 048
     Dates: start: 20130315
  2. CORICIDIN HBP COUGH AND COLD [Suspect]
     Indication: SNEEZING
  3. CORICIDIN HBP COUGH AND COLD [Suspect]
     Indication: RHINORRHOEA

REACTIONS (1)
  - Drug ineffective [Unknown]
